FAERS Safety Report 11840389 (Version 1)
Quarter: 2015Q4

REPORT INFORMATION
  Report Type: Spontaneous
  Country: US (occurrence: US)
  Receive Date: 20151216
  Receipt Date: 20151216
  Transmission Date: 20160305
  Serious: No
  Sender: FDA-Public Use
  Company Number: US-GALDERMA-US15007297

PATIENT
  Age: 35 Year
  Sex: Female
  Weight: 68.18 kg

DRUGS (2)
  1. LYRICA [Concomitant]
     Active Substance: PREGABALIN
  2. MIRVASO [Suspect]
     Active Substance: BRIMONIDINE TARTRATE
     Indication: ROSACEA
     Dosage: 0.33%
     Route: 061
     Dates: start: 20150903, end: 20150914

REACTIONS (5)
  - Flushing [Recovered/Resolved]
  - Skin hyperpigmentation [Not Recovered/Not Resolved]
  - Erythema [Recovered/Resolved]
  - Induration [Not Recovered/Not Resolved]
  - Feeling hot [Recovered/Resolved]

NARRATIVE: CASE EVENT DATE: 20150914
